FAERS Safety Report 9000726 (Version 2)
Quarter: 2013Q1

REPORT INFORMATION
  Report Type: Report from Study
  Country: US (occurrence: US)
  Receive Date: 20130107
  Receipt Date: 20130122
  Transmission Date: 20140127
  Serious: No
  Sender: FDA-Public Use
  Company Number: US-VERTEX PHARMACEUTICALS INC.-2013-000189

PATIENT
  Age: 55 Year
  Sex: Male
  Weight: 78 kg

DRUGS (5)
  1. VX-950 (TELAPREVIR) [Suspect]
     Indication: HEPATITIS C
     Dosage: 750 MG, TID
     Route: 048
  2. PEGASYS [Suspect]
     Indication: HEPATITIS C
     Dosage: 180 ?G, UNK
  3. RIBAVIRIN [Suspect]
     Indication: HEPATITIS C
     Dosage: 200 MG, UNK
  4. LEVOTHYROXINE [Concomitant]
     Dosage: 75 ?G, UNK
  5. OMEPRAZOLE [Concomitant]
     Dosage: 40 MG, UNK

REACTIONS (5)
  - Insomnia [Unknown]
  - Dry skin [Unknown]
  - Anorectal discomfort [Recovered/Resolved]
  - Proctalgia [Recovered/Resolved]
  - Rash [Unknown]
